FAERS Safety Report 12162066 (Version 2)
Quarter: 2016Q1

REPORT INFORMATION
  Report Type: Report from Study
  Country: DE (occurrence: DE)
  Receive Date: 20160309
  Receipt Date: 20160330
  Transmission Date: 20160526
  Serious: Yes (Hospitalization)
  Sender: FDA-Public Use
  Company Number: PHHY2016DE031165

PATIENT
  Age: 78 Year
  Sex: Female
  Weight: 79.8 kg

DRUGS (3)
  1. CORTISONE [Concomitant]
     Active Substance: CORTISONE\HYDROCORTISONE
     Indication: PRODUCT USED FOR UNKNOWN INDICATION
     Route: 065
  2. ILARIS [Suspect]
     Active Substance: CANAKINUMAB
     Indication: GOUTY ARTHRITIS
     Dosage: 150 MG, UNK
     Route: 058
     Dates: start: 20151102
  3. PARACETAMOL [Concomitant]
     Active Substance: ACETAMINOPHEN
     Indication: GOUTY ARTHRITIS
     Dosage: UNK UNK, QD (1-0-0)
     Route: 048
     Dates: start: 20150925

REACTIONS (1)
  - Diverticulitis [Recovered/Resolved]

NARRATIVE: CASE EVENT DATE: 20151123
